FAERS Safety Report 21972856 (Version 1)
Quarter: 2023Q1

REPORT INFORMATION
  Report Type: Spontaneous
  Country: CA (occurrence: CA)
  Receive Date: 20230209
  Receipt Date: 20230209
  Transmission Date: 20230418
  Serious: Yes (Other)
  Sender: FDA-Public Use
  Company Number: CA-MYLANLABS-2023M1012256

PATIENT
  Age: 78 Year
  Sex: Male

DRUGS (6)
  1. PROPAFENONE [Suspect]
     Active Substance: PROPAFENONE
     Indication: Atrial fibrillation
     Dosage: 600 MILLIGRAM, QD (300?MG?TABLETS, 2  EVERY 1 DAY)
     Route: 065
     Dates: start: 20230111, end: 20230128
  2. PROPAFENONE [Suspect]
     Active Substance: PROPAFENONE
     Dosage: 600 MILLIGRAM, QD (300?MG?TABLETS, 2  EVERY 1 DAY)
     Route: 065
     Dates: start: 20230129
  3. ATORVASTATIN [Concomitant]
     Active Substance: ATORVASTATIN
     Indication: Product used for unknown indication
     Dosage: 10 MILLIGRAM, QD
     Route: 065
  4. SERTRALINE [Concomitant]
     Active Substance: SERTRALINE HYDROCHLORIDE
     Indication: Product used for unknown indication
     Dosage: 25 MILLIGRAM, QD
     Route: 065
  5. APIXABAN [Concomitant]
     Active Substance: APIXABAN
     Indication: Anticoagulant therapy
     Dosage: 5 MILLIGRAM, BID
     Route: 065
  6. CLONAZEPAM [Concomitant]
     Active Substance: CLONAZEPAM
     Indication: Stress
     Dosage: UNK ( IN 1 AS NECESSARY)
     Route: 065

REACTIONS (4)
  - Atrial fibrillation [Recovered/Resolved]
  - Drug ineffective [Unknown]
  - Suspected product quality issue [Unknown]
  - Off label use [Unknown]

NARRATIVE: CASE EVENT DATE: 20230126
